FAERS Safety Report 7608452-0 (Version None)
Quarter: 2011Q3

REPORT INFORMATION
  Report Type: 
  Country: None (occurrence: None)
  Receive Date: 20110714
  Receipt Date: 20110705
  Transmission Date: 20111222
  Serious: Yes (Hospitalization)
  Sender: FDA-Public Use
  Company Number: NO-ELI_LILLY_AND_COMPANY-NO201107000890

PATIENT
  Sex: Male

DRUGS (1)
  1. OLANZAPINE [Suspect]
     Indication: SCHIZOAFFECTIVE DISORDER
     Dosage: 405 MG, EVERY 3 WEEKS
     Dates: start: 20110101

REACTIONS (4)
  - SEDATION [None]
  - OVERDOSE [None]
  - AKATHISIA [None]
  - DYSARTHRIA [None]
